FAERS Safety Report 20289566 (Version 7)
Quarter: 2022Q1

REPORT INFORMATION
  Report Type: Report from Study
  Country: US (occurrence: US)
  Receive Date: 20220104
  Receipt Date: 20220315
  Transmission Date: 20220423
  Serious: Yes (Death, Other)
  Sender: FDA-Public Use
  Company Number: US-NOVARTISPH-NVSC2022US000460

PATIENT
  Sex: Male

DRUGS (2)
  1. MAYZENT [Suspect]
     Active Substance: SIPONIMOD
     Indication: Multiple sclerosis
     Dosage: 1 DOSAGE FORM, QD
     Route: 048
  2. LISINOPRIL [Concomitant]
     Active Substance: LISINOPRIL
     Indication: Product used for unknown indication
     Dosage: 1 DOSAGE FORM, QD
     Route: 048

REACTIONS (16)
  - Prostate cancer [Fatal]
  - Neuroendocrine carcinoma [Fatal]
  - Metastases to central nervous system [Fatal]
  - Metastases to spine [Fatal]
  - Metastases to kidney [Fatal]
  - Metastases to liver [Fatal]
  - Metastases to lung [Fatal]
  - Heteronymous diplopia [Unknown]
  - Fatigue [Unknown]
  - Asthenia [Unknown]
  - Multiple sclerosis relapse [Not Recovered/Not Resolved]
  - Hemiparesis [Unknown]
  - Weight decreased [Unknown]
  - Muscle strain [Unknown]
  - Back pain [Unknown]
  - Product availability issue [Unknown]
